FAERS Safety Report 8819421 (Version 1)
Quarter: 2012Q4

REPORT INFORMATION
  Report Type: Spontaneous
  Country: US (occurrence: None)
  Receive Date: 20121003
  Receipt Date: 20121003
  Transmission Date: 20130627
  Serious: Yes (Other)
  Sender: FDA-Public Use
  Company Number: 2012AP003186

PATIENT
  Age: 69 Year
  Sex: Male

DRUGS (1)
  1. LITHIUM CARBONATE [Suspect]

REACTIONS (4)
  - Nephropathy [None]
  - Renal failure chronic [None]
  - Nephrogenic diabetes insipidus [None]
  - Renal cyst [None]
